FAERS Safety Report 8984832 (Version 1)
Quarter: 2012Q4

REPORT INFORMATION
  Report Type: 
  Country: CN (occurrence: CN)
  Receive Date: 20121226
  Receipt Date: 20121226
  Transmission Date: 20130627
  Serious: Yes (Other)
  Sender: FDA-Public Use
  Company Number: CN-BAYER-2012-133079

PATIENT
  Age: 46 Year
  Sex: Female
  Weight: 58 kg

DRUGS (2)
  1. CIPROBAY [Suspect]
     Indication: ANTIINFLAMMATORY THERAPY
     Dosage: 0.2 g, BID
     Route: 041
     Dates: start: 20100330, end: 20100331
  2. CIPROBAY [Suspect]
     Indication: INFECTION LOCALISED

REACTIONS (1)
  - Hepatic function abnormal [Recovering/Resolving]
